FAERS Safety Report 20044412 (Version 1)
Quarter: 2021Q4

REPORT INFORMATION
  Report Type: Spontaneous
  Country: US (occurrence: US)
  Receive Date: 20211108
  Receipt Date: 20211108
  Transmission Date: 20220303
  Serious: No
  Sender: FDA-Public Use
  Company Number: US-OTSUKA-2020_028087

PATIENT
  Sex: Female

DRUGS (2)
  1. NUEDEXTA [Suspect]
     Active Substance: DEXTROMETHORPHAN HYDROBROMIDE\QUINIDINE SULFATE
     Indication: Affect lability
     Dosage: 1 DF, QD
     Route: 065
     Dates: start: 202010, end: 202011
  2. NUEDEXTA [Suspect]
     Active Substance: DEXTROMETHORPHAN HYDROBROMIDE\QUINIDINE SULFATE
     Dosage: 1 DF, BID
     Route: 065
     Dates: start: 202011

REACTIONS (4)
  - Gait disturbance [Unknown]
  - Pain in extremity [Unknown]
  - Myalgia [Not Recovered/Not Resolved]
  - Drug ineffective [Unknown]
